APPROVED DRUG PRODUCT: PREDNISONE
Active Ingredient: PREDNISONE
Strength: 50MG
Dosage Form/Route: TABLET;ORAL
Application: A088465 | Product #001
Applicant: HIKMA PHARMACEUTICALS LLC
Approved: Jun 1, 1984 | RLD: No | RS: No | Type: DISCN